FAERS Safety Report 19820951 (Version 1)
Quarter: 2021Q3

REPORT INFORMATION
  Report Type: Spontaneous
  Country: US (occurrence: US)
  Receive Date: 20210908
  Receipt Date: 20210908
  Transmission Date: 20211014
  Serious: No
  Sender: FDA-Public Use
  Company Number: None

PATIENT
  Age: 79 Year
  Sex: Male

DRUGS (2)
  1. ICATIBANT ACETATE ++ SYR 30MG/3ML TEVA PHARMACEUTICALS USA [Suspect]
     Active Substance: ICATIBANT ACETATE
     Indication: HUMORAL IMMUNE DEFECT
     Route: 058
     Dates: start: 20210316
  2. ICATIBANT ACETATE ++ SYR 30MG/3ML TEVA PHARMACEUTICALS USA [Suspect]
     Active Substance: ICATIBANT ACETATE
     Indication: POLYMYALGIA RHEUMATICA
     Route: 058
     Dates: start: 20210316

REACTIONS (3)
  - Swelling face [None]
  - Pharyngeal swelling [None]
  - Peripheral swelling [None]

NARRATIVE: CASE EVENT DATE: 20210719
